FAERS Safety Report 11703949 (Version 1)
Quarter: 2015Q4

REPORT INFORMATION
  Report Type: Spontaneous
  Country: GB (occurrence: GB)
  Receive Date: 20151106
  Receipt Date: 20151106
  Transmission Date: 20160304
  Serious: Yes (Other)
  Sender: FDA-Public Use
  Company Number: GB-AUROBINDO-AUR-APL-2015-09886

PATIENT
  Age: 40 Year
  Sex: Female
  Weight: 60 kg

DRUGS (3)
  1. LOGYNON [Concomitant]
     Indication: PRODUCT USED FOR UNKNOWN INDICATION
     Dosage: 1 DF, (TAKE ONE AS DIRECTED)
     Route: 065
     Dates: start: 20140908
  2. AMOXICILLIN. [Suspect]
     Active Substance: AMOXICILLIN
     Indication: PRODUCT USED FOR UNKNOWN INDICATION
     Route: 048
     Dates: start: 20151005, end: 20151012
  3. BUDESONIDE. [Concomitant]
     Active Substance: BUDESONIDE
     Indication: PRODUCT USED FOR UNKNOWN INDICATION
     Dosage: 2 DF, TWO TIMES A DAY
     Route: 055
     Dates: start: 20140908

REACTIONS (3)
  - Pallor [Not Recovered/Not Resolved]
  - Rash pruritic [Not Recovered/Not Resolved]
  - Generalised erythema [Not Recovered/Not Resolved]

NARRATIVE: CASE EVENT DATE: 20151005
